FAERS Safety Report 15726805 (Version 2)
Quarter: 2019Q2

REPORT INFORMATION
  Report Type: Report from Study
  Country: JP (occurrence: JP)
  Receive Date: 20181217
  Receipt Date: 20190610
  Transmission Date: 20190711
  Serious: Yes (Other)
  Sender: FDA-Public Use
  Company Number: JP-ROCHE-2228378

PATIENT
  Age: 57 Year
  Sex: Male

DRUGS (2)
  1. VARLITINIB [Concomitant]
     Active Substance: VARLITINIB
     Indication: BILE DUCT CANCER
     Dosage: DOSAGE IS UNCERTAIN.
     Route: 048
  2. CAPECITABINE. [Suspect]
     Active Substance: CAPECITABINE
     Indication: BILE DUCT CANCER
     Route: 048
     Dates: start: 20180612, end: 20181009

REACTIONS (1)
  - Dermatitis bullous [Recovered/Resolved]

NARRATIVE: CASE EVENT DATE: 20180722
